FAERS Safety Report 21512322 (Version 1)
Quarter: 2022Q4

REPORT INFORMATION
  Report Type: Spontaneous
  Country: US (occurrence: None)
  Receive Date: 20221027
  Receipt Date: 20221027
  Transmission Date: 20230112
  Serious: No
  Sender: FDA-Public Use
  Company Number: US-Ultragenyx Pharmaceutical Inc.-US-UGNX-22-00475

PATIENT
  Sex: Female

DRUGS (2)
  1. DOJOLVI [Suspect]
     Active Substance: TRIHEPTANOIN
     Indication: Epilepsy
     Dosage: 1500 MG, 4 TIMES DAILY, VIA G-TUBE
     Dates: start: 20210930
  2. DOJOLVI [Suspect]
     Active Substance: TRIHEPTANOIN
     Dosage: 1.5 ML, 4 TIMES DAILY, VIA G-TUBE
     Dates: start: 20211104

REACTIONS (4)
  - Exercise tolerance decreased [Unknown]
  - Blood glucose fluctuation [Unknown]
  - Off label use [Unknown]
  - Drug ineffective [Unknown]
